FAERS Safety Report 22132634 (Version 1)
Quarter: 2023Q1

REPORT INFORMATION
  Report Type: Spontaneous
  Country: US (occurrence: US)
  Receive Date: 20230323
  Receipt Date: 20230323
  Transmission Date: 20230417
  Serious: No
  Sender: FDA-Public Use
  Company Number: US-BRISTOL-MYERS SQUIBB COMPANY-2023-042118

PATIENT
  Age: 67 Year
  Sex: Female

DRUGS (1)
  1. SPRYCEL [Suspect]
     Active Substance: DASATINIB
     Indication: Acute leukaemia
     Dosage: ONGOING
     Route: 048
     Dates: start: 20230305

REACTIONS (2)
  - Diarrhoea [Unknown]
  - Vomiting [Unknown]
